FAERS Safety Report 25330151 (Version 10)
Quarter: 2025Q4

REPORT INFORMATION
  Report Type: Report from Study
  Country: CN (occurrence: CN)
  Receive Date: 20250519
  Receipt Date: 20251223
  Transmission Date: 20260117
  Serious: Yes (Hospitalization)
  Sender: DR REDDYS
  Company Number: CN-CHN-CHN/2025/05/006923

PATIENT
  Age: 1 Year
  Sex: Male
  Weight: 10.5 kg

DRUGS (14)
  1. VIGABATRIN [Suspect]
     Active Substance: VIGABATRIN
     Indication: Infantile spasms
     Dosage: 1 BAG PER DAY (5.5 ML PER TIME)
     Route: 048
     Dates: start: 20241129, end: 20241129
  2. VIGABATRIN [Suspect]
     Active Substance: VIGABATRIN
     Dosage: 2 BAG PER DAY (5.5 ML PER TIME)?SYMPTOMS PERSIST.
     Route: 048
     Dates: start: 20241130, end: 20241202
  3. VIGABATRIN [Suspect]
     Active Substance: VIGABATRIN
     Dosage: 2 BAG PER DAY (8.25 ML PER TIME).?SYMPTOMS PERSIST
     Route: 048
     Dates: start: 20241203, end: 20241206
  4. VIGABATRIN [Suspect]
     Active Substance: VIGABATRIN
     Dosage: 4 BAG PER DAY (11 ML PER TIME)?SYMPTOMS PERSIST.
     Route: 048
     Dates: start: 20241207, end: 20241210
  5. VIGABATRIN [Suspect]
     Active Substance: VIGABATRIN
     Dosage: 4 BAG PER DAY (13.75 ML PER TIME)?SYMPTOMS PERSIST
     Route: 048
     Dates: start: 20241211, end: 20241214
  6. VIGABATRIN [Suspect]
     Active Substance: VIGABATRIN
     Dosage: 4 BAG PER DAY (16.5 ML PER TIME)
     Route: 048
     Dates: start: 20241215, end: 20241226
  7. VIGABATRIN [Suspect]
     Active Substance: VIGABATRIN
     Dosage: (IN 16.5 ML PER TIME)
     Route: 048
     Dates: start: 20241227, end: 20250126
  8. VIGABATRIN [Suspect]
     Active Substance: VIGABATRIN
     Dosage: IN 16.5 ML PER TIME
     Route: 048
     Dates: start: 20250127, end: 20250215
  9. VIGABATRIN [Suspect]
     Active Substance: VIGABATRIN
     Dosage: IN 16.5 ML PER TIME, WEIGHT LOSS
     Route: 048
     Dates: start: 20250222, end: 20250225
  10. VIGABATRIN [Suspect]
     Active Substance: VIGABATRIN
     Dosage: IN 13.5 ML PER TIME
     Route: 048
     Dates: start: 20250226, end: 20250421
  11. VIGABATRIN [Suspect]
     Active Substance: VIGABATRIN
     Dosage: 10 ML PER TIME, NOT ENOUGH MEDICINE
     Route: 048
     Dates: start: 20250216, end: 20250216
  12. VIGABATRIN [Suspect]
     Active Substance: VIGABATRIN
     Dosage: THE SUBJECT DID NOT RETURN TO THE HOSPITAL AS REQUIRED, RESULTING IN INSUFFICIENT DRUGS
     Route: 048
     Dates: start: 20250217, end: 20250221
  13. VIGABATRIN [Suspect]
     Active Substance: VIGABATRIN
     Route: 048
     Dates: start: 20250422, end: 20250424
  14. VIGABATRIN [Suspect]
     Active Substance: VIGABATRIN
     Dosage: 13.5 ML PER TIME
     Route: 048
     Dates: start: 20250425, end: 20250508

REACTIONS (1)
  - Cerebral dysgenesis [Recovering/Resolving]

NARRATIVE: CASE EVENT DATE: 20250421
